FAERS Safety Report 21790037 (Version 1)
Quarter: 2022Q4

REPORT INFORMATION
  Report Type: Spontaneous
  Country: ES (occurrence: ES)
  Receive Date: 20221228
  Receipt Date: 20221228
  Transmission Date: 20230112
  Serious: Yes (Congenital Anomaly, Other)
  Sender: FDA-Public Use
  Company Number: ES-GILEAD-2022-0610958

PATIENT

DRUGS (3)
  1. VIREAD [Suspect]
     Active Substance: TENOFOVIR DISOPROXIL FUMARATE
     Indication: Prophylaxis against HIV infection
     Route: 064
  2. ZIDOVUDINE [Concomitant]
     Active Substance: ZIDOVUDINE
  3. NEVIRAPINE [Concomitant]
     Active Substance: NEVIRAPINE

REACTIONS (1)
  - Congenital anomaly [Unknown]
